FAERS Safety Report 25877253 (Version 1)
Quarter: 2025Q4

REPORT INFORMATION
  Report Type: Spontaneous
  Country: US (occurrence: None)
  Receive Date: 20251003
  Receipt Date: 20251003
  Transmission Date: 20260117
  Serious: No
  Sender: FDA-CTU
  Company Number: None

PATIENT
  Age: 69 Year
  Sex: Male
  Weight: 90 kg

DRUGS (4)
  1. DARATUMUMAB\HYALURONIDASE-FIHJ [Suspect]
     Active Substance: DARATUMUMAB\HYALURONIDASE-FIHJ
     Indication: Seizure
     Dates: start: 20210302, end: 20250922
  2. DEXAMETHASONE [Concomitant]
     Active Substance: DEXAMETHASONE
     Dates: end: 20220906
  3. LENALIDOMIDE [Concomitant]
     Active Substance: LENALIDOMIDE
     Dates: end: 20250910
  4. VELCADE [Concomitant]
     Active Substance: BORTEZOMIB
     Dates: end: 20220830

REACTIONS (3)
  - Seizure like phenomena [None]
  - Postictal state [None]
  - Tonic convulsion [None]

NARRATIVE: CASE EVENT DATE: 20250922
